FAERS Safety Report 22966942 (Version 2)
Quarter: 2023Q4

REPORT INFORMATION
  Report Type: Spontaneous
  Country: NL (occurrence: NL)
  Receive Date: 20230921
  Receipt Date: 20231005
  Transmission Date: 20240110
  Serious: Yes (Other)
  Sender: FDA-Public Use
  Company Number: None

PATIENT
  Age: 60 Year
  Sex: Male
  Weight: 70 kg

DRUGS (2)
  1. LORLATINIB [Suspect]
     Active Substance: LORLATINIB
     Indication: Non-small cell lung cancer metastatic
     Dosage: 1 X EACH DAY 1 PIECE
     Dates: start: 20190701
  2. PERINDOPRIL [Concomitant]
     Active Substance: PERINDOPRIL
     Dosage: TABLET, 8 MG (MILLIGRAM)

REACTIONS (3)
  - Glomerulonephritis minimal lesion [Recovering/Resolving]
  - Hypoalbuminaemia [Unknown]
  - Hyperlipidaemia [Unknown]
